FAERS Safety Report 6200281-8 (Version None)
Quarter: 2009Q2

REPORT INFORMATION
  Report Type: 
  Country: None (occurrence: None)
  Receive Date: 20090522
  Receipt Date: 20090521
  Transmission Date: 20091009
  Serious: No
  Sender: FDA-Public Use
  Company Number: US-B.I. PHARMACEUTICALS,INC./RIDGEFIELD-2009-BP-06299BP

PATIENT
  Age: 65 Year
  Sex: Female

DRUGS (6)
  1. MIRAPEX [Suspect]
     Indication: RESTLESS LEGS SYNDROME
     Dosage: .5MG
     Route: 048
     Dates: start: 20090301, end: 20090501
  2. ATENOLOL [Concomitant]
     Indication: CARDIAC DISORDER
     Dosage: 25MG
     Route: 048
  3. ACTOPLUS MET [Concomitant]
     Indication: DIABETES MELLITUS
     Route: 048
  4. LIPITOR [Concomitant]
     Indication: BLOOD CHOLESTEROL INCREASED
     Dosage: 10MG
     Route: 048
  5. ASPIRIN [Concomitant]
     Indication: CARDIOVASCULAR DISORDER
     Dosage: 85MG
     Route: 048
  6. SINEMET [Concomitant]
     Indication: RESTLESS LEGS SYNDROME
     Route: 048

REACTIONS (1)
  - PATHOLOGICAL GAMBLING [None]
